FAERS Safety Report 5018798-0 (Version None)
Quarter: 2006Q2

REPORT INFORMATION
  Report Type: 
  Country: None (occurrence: None)
  Receive Date: 20060606
  Receipt Date: 20060503
  Transmission Date: 20061013
  Serious: Yes (Other)
  Sender: FDA-Public Use
  Company Number: GBWYE596303MAY06

PATIENT
  Sex: Male
  Weight: 79 kg

DRUGS (7)
  1. ENBREL [Suspect]
     Indication: PSORIATIC ARTHROPATHY
     Route: 058
     Dates: start: 20051129, end: 20060424
  2. ENBREL [Suspect]
     Route: 058
     Dates: start: 20060425
  3. RISEDRONATE [Concomitant]
     Indication: PROPHYLAXIS
     Route: 048
     Dates: start: 20040101
  4. TRAMADOL HCL [Concomitant]
     Dosage: 100 MG, 6 HOURLY, WHEN REQUIRED
     Route: 048
     Dates: start: 20030101
  5. CALCICHEW-D3 FORTE [Concomitant]
     Indication: PROPHYLAXIS
     Route: 048
     Dates: start: 20040101
  6. PREDNISOLONE [Concomitant]
     Indication: ARTHRITIS
     Route: 048
     Dates: start: 20030101
  7. DICLOFENAC POTASSIUM [Concomitant]
     Indication: ARTHRITIS
     Route: 048
     Dates: start: 20030101, end: 20060322

REACTIONS (1)
  - ASTHMA [None]
